FAERS Safety Report 6330482-X (Version None)
Quarter: 2009Q3

REPORT INFORMATION
  Report Type: 
  Country: None (occurrence: None)
  Receive Date: 20090827
  Receipt Date: 20090119
  Transmission Date: 20100115
  Serious: No
  Sender: FDA-Public Use
  Company Number: A0765109A

PATIENT
  Sex: Female

DRUGS (2)
  1. ACYCLOVIR [Suspect]
     Indication: HERPES VIRUS INFECTION
  2. VALTREX [Concomitant]

REACTIONS (1)
  - DRUG INEFFECTIVE [None]
